FAERS Safety Report 9251960 (Version 1)
Quarter: 2013Q2

REPORT INFORMATION
  Report Type: Spontaneous
  Country: CN (occurrence: CN)
  Receive Date: 20130424
  Receipt Date: 20130424
  Transmission Date: 20140414
  Serious: Yes (Death)
  Sender: FDA-Public Use
  Company Number: CN-JNJFOC-20130410815

PATIENT
  Sex: 0

DRUGS (6)
  1. ITRACONAZOLE [Suspect]
     Indication: ANTIFUNGAL PROPHYLAXIS
     Route: 042
  2. VORICONAZOLE [Interacting]
     Indication: ANTIFUNGAL PROPHYLAXIS
     Route: 042
  3. VORICONAZOLE [Interacting]
     Indication: ANTIFUNGAL PROPHYLAXIS
     Dosage: ONLY 2 DOSES
     Route: 042
  4. CYCLOSPORINE A [Interacting]
     Indication: PROPHYLAXIS AGAINST GRAFT VERSUS HOST DISEASE
     Dosage: DOSES WERE ADJUSTED AS REQUIRED TO KEEP TROUGH LEVELS IN THE RANGE OF 200-400 NG/ML
     Route: 042
  5. CYCLOSPORINE A [Interacting]
     Indication: PROPHYLAXIS AGAINST GRAFT VERSUS HOST DISEASE
     Dosage: 200-400 NG/ML
     Route: 042
  6. VORICONAZOLE [Interacting]
     Indication: ANTIFUNGAL PROPHYLAXIS
     Route: 048

REACTIONS (3)
  - Idiopathic pneumonia syndrome [Fatal]
  - Acute graft versus host disease in skin [Fatal]
  - Drug interaction [Fatal]
